FAERS Safety Report 10230759 (Version 1)
Quarter: 2014Q2

REPORT INFORMATION
  Report Type: Report from Study
  Country: CN (occurrence: CN)
  Receive Date: 20140611
  Receipt Date: 20140611
  Transmission Date: 20141212
  Serious: Yes (Hospitalization)
  Sender: FDA-Public Use
  Company Number: CN-AMGEN INC.-CHNCT2014043375

PATIENT
  Age: 59 Year
  Sex: Male

DRUGS (4)
  1. DARBEPOETIN ALFA [Suspect]
     Indication: NEPHROGENIC ANAEMIA
     Dosage: 30 MUG, QWK
     Route: 042
     Dates: start: 20140225, end: 20140531
  2. EPOETIN ALFA [Concomitant]
     Indication: NEPHROGENIC ANAEMIA
     Dosage: 7500 IU, QWK
     Route: 042
     Dates: start: 20131231, end: 20140218
  3. NOVOLIN 30R                        /00030501/ [Concomitant]
     Dosage: 8 IU, BID
     Route: 065
     Dates: start: 20131231
  4. IRON SUCROSE [Concomitant]
     Dosage: UNK UNK, QMO
     Route: 065
     Dates: start: 20131231

REACTIONS (1)
  - Cardiac failure [Unknown]
